FAERS Safety Report 6139810-1 (Version None)
Quarter: 2009Q2

REPORT INFORMATION
  Report Type: 
  Country: None (occurrence: None)
  Receive Date: 20090401
  Receipt Date: 20090320
  Transmission Date: 20091009
  Serious: Yes (Death)
  Sender: FDA-Public Use
  Company Number: B0566857A

PATIENT

DRUGS (4)
  1. MELPHALAN [Suspect]
     Indication: HODGKIN'S DISEASE
  2. CARMUSTINE [Suspect]
     Indication: HODGKIN'S DISEASE
  3. ETOPOSIDE [Suspect]
     Indication: HODGKIN'S DISEASE
  4. ARA-C [Suspect]
     Indication: HODGKIN'S DISEASE

REACTIONS (1)
  - DRUG TOXICITY [None]
